FAERS Safety Report 6617595-X (Version None)
Quarter: 2010Q1

REPORT INFORMATION
  Report Type: 
  Country: None (occurrence: None)
  Receive Date: 20100223
  Receipt Date: 20091113
  Transmission Date: 20100710
  Serious: Yes (Hospitalization)
  Sender: FDA-Public Use
  Company Number: 8054908

PATIENT
  Sex: Male

DRUGS (9)
  1. CERTOLIZUMAB PEGOL [Suspect]
     Indication: CROHN'S DISEASE
     Dosage: (400 MG, ONE MONTHLY SUBCUTANEOUS)
     Route: 058
     Dates: start: 20080806
  2. REMICADE [Suspect]
     Indication: CROHN'S DISEASE
     Dosage: 5 MG/KG DAILY INTRAVENOUS; SEE IMAGE
     Route: 042
     Dates: start: 20020829
  3. REMICADE [Suspect]
     Indication: CROHN'S DISEASE
     Dosage: 5 MG/KG DAILY INTRAVENOUS; SEE IMAGE
     Route: 042
     Dates: start: 20030822
  4. IMODIUM [Suspect]
     Indication: CROHN'S DISEASE
  5. NEXIUM [Suspect]
     Indication: CROHN'S DISEASE
     Dosage: (40 MG QD)
  6. PEDIALYTE /00921901/ [Suspect]
     Indication: CROHN'S DISEASE
  7. QUESTRAN [Suspect]
     Indication: CROHN'S DISEASE
     Dosage: (TWO IN ONE DAY)
  8. XIFAXAN [Suspect]
     Indication: CROHN'S DISEASE
  9. PROBIOTICA (NOT SPECIFIED) [Suspect]
     Indication: CROHN'S DISEASE

REACTIONS (3)
  - DEHYDRATION [None]
  - DIARRHOEA [None]
  - RENAL FAILURE ACUTE [None]
